FAERS Safety Report 9180125 (Version 1)
Quarter: 2013Q1

REPORT INFORMATION
  Report Type: Spontaneous
  Country: JP (occurrence: JP)
  Receive Date: 20130321
  Receipt Date: 20130321
  Transmission Date: 20140127
  Serious: Yes (Hospitalization)
  Sender: FDA-Public Use
  Company Number: JP-009507513-1303JPN008368

PATIENT
  Sex: 0

DRUGS (2)
  1. JANUVIA TABLETS 50MG [Suspect]
     Indication: BLOOD GLUCOSE DECREASED
     Dosage: 50 MG, QD
     Route: 048
     Dates: start: 201211, end: 201302
  2. MELBIN [Suspect]
     Indication: BLOOD GLUCOSE DECREASED
     Dosage: 50 MG, BID
     Route: 048
     Dates: end: 201302

REACTIONS (2)
  - Hepatitis acute [Unknown]
  - Jaundice [Not Recovered/Not Resolved]
